FAERS Safety Report 8513152-9 (Version None)
Quarter: 2012Q3

REPORT INFORMATION
  Report Type: 
  Country: None (occurrence: None)
  Receive Date: 20120716
  Receipt Date: 20120709
  Transmission Date: 20120928
  Serious: Yes (Other)
  Sender: FDA-Public Use
  Company Number: US-GILEAD-2012-0057792

PATIENT
  Sex: Female

DRUGS (2)
  1. LASIX [Concomitant]
  2. LETAIRIS [Suspect]
     Indication: PRODUCT USED FOR UNKNOWN INDICATION
     Dosage: 10 MG, UNK
     Route: 048
     Dates: start: 20090805

REACTIONS (3)
  - SPLENOMEGALY [None]
  - ASCITES [None]
  - RENAL IMPAIRMENT [None]
